FAERS Safety Report 10763441 (Version 1)
Quarter: 2015Q1

REPORT INFORMATION
  Report Type: Spontaneous
  Country: US (occurrence: US)
  Receive Date: 20150204
  Receipt Date: 20150204
  Transmission Date: 20150721
  Serious: Yes (Other)
  Sender: FDA-Public Use
  Company Number: US-ELI_LILLY_AND_COMPANY-US201501008894

PATIENT
  Sex: Female

DRUGS (2)
  1. HUMALOG [Suspect]
     Active Substance: INSULIN LISPRO
     Indication: TYPE 2 DIABETES MELLITUS
     Dosage: UNK UNK, PRN
     Route: 065
     Dates: start: 2005
  2. LANTUS [Concomitant]
     Active Substance: INSULIN GLARGINE

REACTIONS (11)
  - Blood glucose increased [Unknown]
  - Cardiac failure congestive [Unknown]
  - Hypothyroidism [Unknown]
  - Fall [Unknown]
  - Vasculitis [Unknown]
  - Neuropathy peripheral [Unknown]
  - Restless legs syndrome [Unknown]
  - Drug ineffective [Unknown]
  - Coronary artery disease [Unknown]
  - Pain in extremity [Unknown]
  - Gastrooesophageal reflux disease [Unknown]

NARRATIVE: CASE EVENT DATE: 201501
